FAERS Safety Report 7369554-X (Version None)
Quarter: 2011Q1

REPORT INFORMATION
  Report Type: 
  Country: None (occurrence: None)
  Receive Date: 20110314
  Receipt Date: 20110302
  Transmission Date: 20110831
  Serious: Yes (Hospitalization)
  Sender: FDA-Public Use
  Company Number: UTC-005491

PATIENT
  Age: 70 Year
  Sex: Female
  Weight: 54.5 kg

DRUGS (3)
  1. DIURETICS (DIURETICS) [Concomitant]
  2. OXYGEN (OXYGEN) [Concomitant]
  3. TYVASO [Suspect]
     Indication: PULMONARY HYPERTENSION
     Dosage: 72 MCG (18 MCG,4 IN 1 D), INHALATION
     Route: 055
     Dates: start: 20101001, end: 20110225

REACTIONS (1)
  - DYSPNOEA [None]
